FAERS Safety Report 6980667-4 (Version None)
Quarter: 2010Q3

REPORT INFORMATION
  Report Type: 
  Country: None (occurrence: None)
  Receive Date: 20100914
  Receipt Date: 20100803
  Transmission Date: 20110219
  Serious: Yes (Death, Life-Threatening, Other)
  Sender: FDA-Public Use
  Company Number: US-BAXTER-2008BH003287

PATIENT
  Age: 61 Year
  Sex: Male
  Weight: 71 kg

DRUGS (18)
  1. HEPARIN SODIUM INJECTION [Suspect]
     Indication: CARDIAC OPERATION
     Route: 042
     Dates: start: 20071114, end: 20071114
  2. HEPARIN SODIUM INJECTION [Suspect]
     Indication: ANTICOAGULANT THERAPY
     Route: 042
     Dates: start: 20071114, end: 20071114
  3. HEPARIN SODIUM INJECTION [Suspect]
     Route: 042
     Dates: start: 20071114, end: 20071114
  4. HEPARIN SODIUM INJECTION [Suspect]
     Route: 042
     Dates: start: 20071114, end: 20071114
  5. HEPARIN SODIUM INJECTION [Suspect]
     Route: 040
     Dates: start: 20071115
  6. HEPARIN SODIUM INJECTION [Suspect]
     Route: 040
     Dates: start: 20071115
  7. HEPARIN SODIUM INJECTION [Suspect]
     Route: 042
     Dates: start: 20071116, end: 20071116
  8. HEPARIN SODIUM INJECTION [Suspect]
     Route: 042
     Dates: start: 20071116, end: 20071116
  9. HEPARIN SODIUM INJECTION [Suspect]
     Route: 041
     Dates: start: 20071115
  10. HEPARIN SODIUM INJECTION [Suspect]
     Route: 041
     Dates: start: 20071115
  11. ASPIRIN [Concomitant]
     Indication: PRODUCT USED FOR UNKNOWN INDICATION
     Route: 048
  12. PRILOSEC [Concomitant]
     Indication: PRODUCT USED FOR UNKNOWN INDICATION
     Route: 048
  13. LIPITOR [Concomitant]
     Indication: PRODUCT USED FOR UNKNOWN INDICATION
     Route: 048
  14. DAILY MULTIVITAMIN [Concomitant]
     Indication: PRODUCT USED FOR UNKNOWN INDICATION
     Route: 048
  15. GRAPE SEED EXTRACT [Concomitant]
     Indication: PRODUCT USED FOR UNKNOWN INDICATION
     Route: 048
  16. LOVAZA [Concomitant]
     Indication: PRODUCT USED FOR UNKNOWN INDICATION
     Route: 065
  17. ATENOLOL [Concomitant]
     Indication: PRODUCT USED FOR UNKNOWN INDICATION
     Route: 048
  18. COLCHICINE [Concomitant]
     Indication: PRODUCT USED FOR UNKNOWN INDICATION
     Route: 048

REACTIONS (13)
  - ANAEMIA [None]
  - ANAPHYLACTIC SHOCK [None]
  - ASPIRATION [None]
  - AZOTAEMIA [None]
  - BLOOD PRESSURE DECREASED [None]
  - DYSPNOEA [None]
  - GASTROOESOPHAGEAL REFLUX DISEASE [None]
  - HYPOXIA [None]
  - LEUKOPENIA [None]
  - MULTI-ORGAN FAILURE [None]
  - NAUSEA [None]
  - RESPIRATORY FAILURE [None]
  - VOMITING [None]
